FAERS Safety Report 18843047 (Version 1)
Quarter: 2021Q1

REPORT INFORMATION
  Report Type: Spontaneous
  Country: US (occurrence: US)
  Receive Date: 20210204
  Receipt Date: 20210204
  Transmission Date: 20210419
  Serious: Yes (Death, Hospitalization)
  Sender: FDA-Public Use
  Company Number: US-MYLANLABS-2021M1006805

PATIENT
  Age: 72 Year
  Sex: Female

DRUGS (3)
  1. DEXAMETHASONE. [Suspect]
     Active Substance: DEXAMETHASONE
     Indication: MENINGIOMA
     Dosage: 4 MILLIGRAM, Q6H STARTED AFTER IT WAS NOTED THAT SHE HAD STOPPED THE ORAL THERAPY PRIOR TO..
     Route: 042
  2. DEXAMETHASONE. [Suspect]
     Active Substance: DEXAMETHASONE
     Dosage: 6 MILLIGRAM, Q6H
     Route: 042
  3. DEXAMETHASONE. [Suspect]
     Active Substance: DEXAMETHASONE
     Indication: MENINGIOMA
     Dosage: 4 MILLIGRAM, Q6H FOR A SCHEDULED...
     Route: 048

REACTIONS (6)
  - Pneumothorax [Fatal]
  - Ileus [Unknown]
  - Bronchopulmonary aspergillosis [Fatal]
  - Septic shock [Fatal]
  - Multiple organ dysfunction syndrome [Fatal]
  - Renal impairment [Unknown]
